FAERS Safety Report 7762371-8 (Version None)
Quarter: 2011Q3

REPORT INFORMATION
  Report Type: 
  Country: None (occurrence: None)
  Receive Date: 20110920
  Receipt Date: 20110907
  Transmission Date: 20111222
  Serious: Yes (Other)
  Sender: FDA-Public Use
  Company Number: DE-ROCHE-802270

PATIENT
  Sex: Male

DRUGS (2)
  1. ROFERON-A [Suspect]
     Indication: MALIGNANT MELANOMA
     Dosage: DOSE 3MIU
     Route: 058
     Dates: start: 20110701
  2. ACETAMINOPHEN [Concomitant]

REACTIONS (2)
  - BASAL CELL CARCINOMA [None]
  - IMPAIRED HEALING [None]
